FAERS Safety Report 6186285-2 (Version None)
Quarter: 2009Q2

REPORT INFORMATION
  Report Type: 
  Country: None (occurrence: None)
  Receive Date: 20090511
  Receipt Date: 20090430
  Transmission Date: 20091009
  Serious: Yes (Other)
  Sender: FDA-Public Use
  Company Number: AU-SANOFI-SYNTHELABO-A01200813311

PATIENT
  Sex: Female

DRUGS (4)
  1. FELODUR [Concomitant]
     Dosage: 10 MG
     Route: 048
     Dates: start: 20061213
  2. ACTONEL [Suspect]
     Indication: OSTEOPOROSIS
     Route: 048
     Dates: start: 20040601
  3. PLAVIX [Suspect]
     Route: 048
     Dates: start: 20070301
  4. KARVEZIDE [Suspect]
     Dosage: 12.5 MG
     Route: 048
     Dates: start: 20070330

REACTIONS (2)
  - DIZZINESS [None]
  - FALL [None]
